FAERS Safety Report 4922735-4 (Version None)
Quarter: 2006Q1

REPORT INFORMATION
  Report Type: 
  Country: None (occurrence: None)
  Receive Date: 20060224
  Receipt Date: 20051025
  Transmission Date: 20060701
  Serious: Yes (Hospitalization, Disabling)
  Sender: FDA-Public Use
  Company Number: US-MERCK-0510USA09228

PATIENT
  Age: 69 Year
  Sex: Male
  Weight: 91 kg

DRUGS (8)
  1. VIOXX [Suspect]
     Indication: ARTHRITIS
     Route: 048
     Dates: start: 19990520, end: 20011230
  2. VIOXX [Suspect]
     Indication: PAIN
     Route: 048
     Dates: start: 19990520, end: 20011230
  3. ATACAND [Concomitant]
     Route: 065
  4. CELEBREX [Concomitant]
     Indication: PAIN
     Route: 065
     Dates: start: 19990101, end: 19990501
  5. TOPROL-XL [Concomitant]
     Route: 065
     Dates: start: 20010109
  6. ASPIRIN [Concomitant]
     Indication: PROPHYLAXIS
     Route: 065
     Dates: start: 20010109
  7. ZOCOR [Concomitant]
     Indication: BLOOD CHOLESTEROL INCREASED
     Route: 065
     Dates: start: 20010109
  8. TYLENOL (CAPLET) [Concomitant]
     Route: 065
     Dates: start: 19900101

REACTIONS (8)
  - ARTHROPATHY [None]
  - BLOOD TRIGLYCERIDES INCREASED [None]
  - CHOLECYSTITIS [None]
  - CHOLECYSTITIS INFECTIVE [None]
  - GASTRIC DISORDER [None]
  - HAEMORRHAGE [None]
  - MYOCARDIAL INFARCTION [None]
  - PAIN [None]
